FAERS Safety Report 23547050 (Version 1)
Quarter: 2024Q1

REPORT INFORMATION
  Report Type: Spontaneous
  Country: US (occurrence: US)
  Receive Date: 20240221
  Receipt Date: 20240221
  Transmission Date: 20240410
  Serious: No
  Sender: FDA-Public Use
  Company Number: US-TAKEDA-2024TUS015978

PATIENT
  Sex: Female
  Weight: 77 kg

DRUGS (1)
  1. MOTEGRITY [Suspect]
     Active Substance: PRUCALOPRIDE SUCCINATE
     Indication: Impaired gastric emptying
     Dosage: 2 MILLIGRAM
     Route: 065
     Dates: start: 2019

REACTIONS (2)
  - Insurance issue [Unknown]
  - Inability to afford medication [Unknown]
